FAERS Safety Report 4695994-3 (Version None)
Quarter: 2005Q2

REPORT INFORMATION
  Report Type: 
  Country: None (occurrence: None)
  Receive Date: 20050621
  Receipt Date: 20050527
  Transmission Date: 20051028
  Serious: No
  Sender: FDA-Public Use
  Company Number: US-GLAXOSMITHKLINE-A0560559A

PATIENT
  Age: 42 Year
  Sex: Female
  Weight: 61.8 kg

DRUGS (2)
  1. IMITREX [Suspect]
     Indication: MIGRAINE
     Dosage: 100MG SINGLE DOSE
     Route: 048
     Dates: start: 20050501, end: 20050501
  2. NO CONCURRENT MEDICATION [Concomitant]

REACTIONS (3)
  - FATIGUE [None]
  - MUSCLE TIGHTNESS [None]
  - TREMOR [None]
